FAERS Safety Report 9230924 (Version 1)
Quarter: 2013Q1

REPORT INFORMATION
  Report Type: Spontaneous
  Country: US (occurrence: None)
  Receive Date: 20121031
  Receipt Date: 20121031
  Transmission Date: 20140127
  Serious: No
  Sender: FDA-Public Use
  Company Number: PHEH2012US011136

PATIENT
  Age: 38 Year
  Sex: Female
  Weight: 61.2 kg

DRUGS (11)
  1. GILENYA (FTY)CAPSULE,0.5MG [Suspect]
     Route: 048
  2. FLEXERIL [Suspect]
  3. ATIVAN (LORAZEPAM) [Concomitant]
  4. VOLTAREN (DICOFENAC DIETHYLAMINE) [Concomitant]
  5. PREDNISONE (PREDNISONE) [Concomitant]
  6. ROBAXIN (METHOCARBAMOL) [Concomitant]
  7. TRAMADOL HYDROCHLORIDE) (TRAMADOL HYDROCHLORIDE) [Concomitant]
  8. VITAMIN D (ERGOCALCIFEROL)TABLET [Concomitant]
  9. PRIMIDONE (PRIMIDONE) TABLET [Concomitant]
  10. MARALAX (MACROGOL) [Concomitant]
  11. STOOL SOFTENER (DOCUSATE SODIUM) [Concomitant]

REACTIONS (4)
  - Asthenia [None]
  - Fatigue [None]
  - Constipation [None]
  - Night sweats [None]
